FAERS Safety Report 16377964 (Version 1)
Quarter: 2019Q2

REPORT INFORMATION
  Report Type: Spontaneous
  Country: IT (occurrence: IT)
  Receive Date: 20190531
  Receipt Date: 20190531
  Transmission Date: 20190711
  Serious: Yes (Life-Threatening)
  Sender: FDA-Public Use
  Company Number: IT-TEVA-2019-IT-1056901

PATIENT
  Age: 60 Year
  Sex: Female

DRUGS (7)
  1. LANTUS [Concomitant]
     Active Substance: INSULIN GLARGINE
  2. EUCREAS [Concomitant]
     Active Substance: METFORMIN HYDROCHLORIDE\VILDAGLIPTIN
  3. CARBOLITHIUM 300 MG CAPSULE RIGIDE [Suspect]
     Active Substance: LITHIUM CARBONATE
     Indication: BIPOLAR DISORDER
     Route: 048
  4. CARDIRENE [Concomitant]
     Active Substance: ASPIRIN DL-LYSINE
  5. LORAZEPAM. [Concomitant]
     Active Substance: LORAZEPAM
  6. ENTUMIN [Concomitant]
     Active Substance: CLOTHIAPINE
  7. INVEGA 6 MG PROLONGED-RELEASE TABLETS [Concomitant]

REACTIONS (1)
  - Toxicity to various agents [Recovering/Resolving]

NARRATIVE: CASE EVENT DATE: 20190506
